FAERS Safety Report 6285883-5 (Version None)
Quarter: 2009Q3

REPORT INFORMATION
  Report Type: 
  Country: None (occurrence: None)
  Receive Date: 20090728
  Receipt Date: 20090721
  Transmission Date: 20100115
  Serious: Yes (Other)
  Sender: FDA-Public Use
  Company Number: US-ELI_LILLY_AND_COMPANY-US200907004481

PATIENT
  Sex: Female

DRUGS (3)
  1. HUMALOG [Suspect]
  2. HUMALOG [Suspect]
  3. LANTUS [Concomitant]

REACTIONS (6)
  - BLOOD GLUCOSE INCREASED [None]
  - DIABETIC RETINOPATHY [None]
  - DRUG INEFFECTIVE [None]
  - EYE HAEMORRHAGE [None]
  - LASER THERAPY [None]
  - VISUAL ACUITY REDUCED [None]
